FAERS Safety Report 5287255-9 (Version None)
Quarter: 2007Q1

REPORT INFORMATION
  Report Type: 
  Country: None (occurrence: None)
  Receive Date: 20070116
  Receipt Date: 20061005
  Transmission Date: 20070707
  Serious: No
  Sender: FDA-Public Use
  Company Number: 2006SP003572

PATIENT
  Age: 66 Year
  Sex: Female
  Weight: 58.9676 kg

DRUGS (3)
  1. LUNESTA [Suspect]
     Indication: INSOMNIA
     Dosage: 2 MG; HS; ORAL
     Route: 048
     Dates: start: 20060901, end: 20060901
  2. ATORVASTATIN CALCIUM [Concomitant]
  3. ESTRADIOL [Concomitant]

REACTIONS (2)
  - HEADACHE [None]
  - NECK PAIN [None]
